FAERS Safety Report 5483397-3 (Version None)
Quarter: 2007Q4

REPORT INFORMATION
  Report Type: 
  Country: None (occurrence: None)
  Receive Date: 20071012
  Receipt Date: 20071005
  Transmission Date: 20080405
  Serious: Yes (Hospitalization)
  Sender: FDA-Public Use
  Company Number: JP-SP-2007-02700

PATIENT
  Age: 76 Year
  Sex: Male

DRUGS (4)
  1. IMMUCYST [Suspect]
     Indication: BLADDER CANCER
     Route: 043
     Dates: start: 20070426, end: 20070618
  2. IMMUCYST [Suspect]
     Route: 043
     Dates: start: 20070426, end: 20070618
  3. SILODOSIN [Concomitant]
     Dates: start: 20061109
  4. LEVOFLOXACIN [Concomitant]
     Dates: start: 20070618, end: 20070625

REACTIONS (3)
  - BLADDER TAMPONADE [None]
  - BLOOD URINE [None]
  - FATIGUE [None]
